FAERS Safety Report 23650834 (Version 2)
Quarter: 2024Q1

REPORT INFORMATION
  Report Type: Spontaneous
  Country: DE (occurrence: None)
  Receive Date: 20240320
  Receipt Date: 20240323
  Transmission Date: 20240409
  Serious: Yes (Life-Threatening)
  Sender: FDA-Public Use
  Company Number: DE-ROCHE-3523523

PATIENT
  Age: 33 Year
  Sex: Female
  Weight: 43 kg

DRUGS (5)
  1. OCREVUS [Suspect]
     Active Substance: OCRELIZUMAB
     Indication: Relapsing-remitting multiple sclerosis
     Route: 042
     Dates: start: 20191002
  2. OCREVUS [Suspect]
     Active Substance: OCRELIZUMAB
     Dosage: 7TH CYCLE
     Route: 042
     Dates: start: 20221027
  3. OCREVUS [Suspect]
     Active Substance: OCRELIZUMAB
     Dosage: 8TH CYCLE
     Route: 042
     Dates: start: 20230424
  4. OCREVUS [Suspect]
     Active Substance: OCRELIZUMAB
     Dosage: 9TH CYCLE
     Route: 042
     Dates: start: 20231023
  5. ESCITALOPRAM [Concomitant]
     Active Substance: ESCITALOPRAM OXALATE
     Indication: Depression
     Route: 048
     Dates: end: 202401

REACTIONS (1)
  - Encephalitis autoimmune [Not Recovered/Not Resolved]

NARRATIVE: CASE EVENT DATE: 20231101
